FAERS Safety Report 5518134-7 (Version None)
Quarter: 2007Q4

REPORT INFORMATION
  Report Type: 
  Country: None (occurrence: None)
  Receive Date: 20071113
  Receipt Date: 20071113
  Transmission Date: 20080405
  Serious: Yes (Hospitalization)
  Sender: FDA-Public Use
  Company Number: None

PATIENT
  Sex: Female

DRUGS (1)
  1. BYETTA [Suspect]
     Indication: TYPE 2 DIABETES MELLITUS
     Dosage: BYETTA 10MCG AT BREAKFAST AND SUPPER SUBCUTANEOUS
     Route: 058
     Dates: start: 20070605, end: 20071106

REACTIONS (1)
  - PANCREATITIS [None]
